FAERS Safety Report 20632284 (Version 2)
Quarter: 2022Q2

REPORT INFORMATION
  Report Type: Report from Study
  Country: US (occurrence: US)
  Receive Date: 20220324
  Receipt Date: 20220428
  Transmission Date: 20220721
  Serious: Yes (Death, Hospitalization, Other)
  Sender: FDA-Public Use
  Company Number: US-ALLERGAN-2209501US

PATIENT
  Sex: Male

DRUGS (1)
  1. DONEPEZIL HYDROCHLORIDE\MEMANTINE HYDROCHLORIDE [Suspect]
     Active Substance: DONEPEZIL HYDROCHLORIDE\MEMANTINE HYDROCHLORIDE
     Indication: Dementia
     Dosage: 1 DF, QD
     Route: 048

REACTIONS (16)
  - Bladder cancer recurrent [Fatal]
  - Dysstasia [Not Recovered/Not Resolved]
  - Bladder cancer [Recovered/Resolved]
  - Unresponsive to stimuli [Not Recovered/Not Resolved]
  - Nail disorder [Unknown]
  - Fall [Recovered/Resolved]
  - Localised infection [Recovering/Resolving]
  - Peripheral swelling [Recovering/Resolving]
  - Pain [Unknown]
  - Pollakiuria [Not Recovered/Not Resolved]
  - Irritability [Unknown]
  - Feeding disorder [Not Recovered/Not Resolved]
  - Rhinorrhoea [Not Recovered/Not Resolved]
  - Cystitis [Not Recovered/Not Resolved]
  - Hypersomnia [Not Recovered/Not Resolved]
  - Asthenia [Not Recovered/Not Resolved]

NARRATIVE: CASE EVENT DATE: 20190101
